FAERS Safety Report 25670177 (Version 1)
Quarter: 2025Q3

REPORT INFORMATION
  Report Type: Spontaneous
  Country: US (occurrence: None)
  Receive Date: 20250811
  Receipt Date: 20250811
  Transmission Date: 20251020
  Serious: Yes (Hospitalization)
  Sender: FDA-CTU
  Company Number: None

PATIENT
  Sex: Male

DRUGS (4)
  1. STELARA [Suspect]
     Active Substance: USTEKINUMAB
     Indication: Crohn^s disease
     Dates: start: 20250221
  2. CIPROFLOXACN TAB [Concomitant]
  3. METRONIDAZOL TAB [Concomitant]
  4. PREDNISONE [Concomitant]
     Active Substance: PREDNISONE

REACTIONS (4)
  - Pyrexia [None]
  - Hyperhidrosis [None]
  - Loss of personal independence in daily activities [None]
  - Infection [None]
